FAERS Safety Report 5216236-6 (Version None)
Quarter: 2007Q1

REPORT INFORMATION
  Report Type: 
  Country: None (occurrence: None)
  Receive Date: 20070123
  Receipt Date: 20070117
  Transmission Date: 20070707
  Serious: Yes (Death)
  Sender: FDA-Public Use
  Company Number: US-ROXANE LABORATORIES, INC-2007-BP-00827RO

PATIENT
  Age: 25 Year
  Sex: Male

DRUGS (2)
  1. MIRTAZAPINE [Suspect]
  2. VENLAFAXINE HCL [Suspect]

REACTIONS (1)
  - COMPLETED SUICIDE [None]
